FAERS Safety Report 4457641-5 (Version None)
Quarter: 2004Q3

REPORT INFORMATION
  Report Type: 
  Country: None (occurrence: None)
  Receive Date: 20040922
  Receipt Date: 20040914
  Transmission Date: 20050211
  Serious: Yes (Disabling)
  Sender: FDA-Public Use
  Company Number: US-GDP-0411360

PATIENT
  Age: 61 Year
  Sex: Female

DRUGS (1)
  1. DESOWEN [Suspect]
     Indication: DERMATITIS CONTACT
     Dosage: 5 APP QD TP
     Route: 061
     Dates: start: 20010201, end: 20010301

REACTIONS (5)
  - APPLICATION SITE BURNING [None]
  - BLINDNESS UNILATERAL [None]
  - CATARACT [None]
  - EYE IRRITATION [None]
  - VISION BLURRED [None]
